FAERS Safety Report 20347607 (Version 2)
Quarter: 2023Q1

REPORT INFORMATION
  Report Type: Spontaneous
  Country: US (occurrence: US)
  Receive Date: 20220118
  Receipt Date: 20230314
  Transmission Date: 20230418
  Serious: Yes (Death, Other)
  Sender: FDA-Public Use
  Company Number: US-MYLANLABS-2022M1003637

PATIENT
  Age: 63 Year
  Sex: Female
  Weight: 84.821 kg

DRUGS (11)
  1. VALSARTAN [Suspect]
     Active Substance: VALSARTAN
     Indication: Hypertension
     Dosage: UNK
     Route: 065
     Dates: start: 20160309, end: 20160607
  2. VALSARTAN [Suspect]
     Active Substance: VALSARTAN
     Indication: Hypertension
     Dosage: UNK
     Route: 065
     Dates: start: 20160613, end: 20180206
  3. VALSARTAN [Suspect]
     Active Substance: VALSARTAN
     Indication: Hypertension
     Dosage: UNK
     Route: 065
     Dates: start: 20180504, end: 20180802
  4. AMMONIUM LACTATE [Concomitant]
     Active Substance: AMMONIUM LACTATE
     Indication: Dry skin
     Dosage: 12 PERCENT
     Route: 065
     Dates: start: 200611, end: 201409
  5. HYDROCHLOROTHIAZIDE [Concomitant]
     Active Substance: HYDROCHLOROTHIAZIDE
     Indication: Hypertension
     Dosage: 12.5 MILLIGRAM
     Route: 065
     Dates: start: 200804, end: 20200811
  6. DIOVAN [Concomitant]
     Active Substance: VALSARTAN
     Indication: Hypertension
     Dosage: 40 MILLIGRAM
     Route: 065
     Dates: start: 201107, end: 201409
  7. ALPRAZOLAM [Concomitant]
     Active Substance: ALPRAZOLAM
     Indication: Anxiety
     Dosage: 0.5 MILLIGRAM
     Route: 065
     Dates: start: 201003, end: 201808
  8. DEXILANT [Concomitant]
     Active Substance: DEXLANSOPRAZOLE
     Indication: Gastrooesophageal reflux disease
     Dosage: 60 MILLIGRAM
     Route: 065
     Dates: start: 201302, end: 201307
  9. MOTRIN [Concomitant]
     Active Substance: IBUPROFEN
     Indication: Myalgia
     Dosage: 600 MILLIGRAM
     Route: 065
     Dates: start: 2006, end: 2018
  10. TYLENOL [Concomitant]
     Active Substance: ACETAMINOPHEN
     Indication: Pain
     Dosage: 325 MILLIGRAM
     Route: 065
     Dates: start: 2006, end: 2018
  11. Zicam [Concomitant]
     Indication: Hypersensitivity
     Dosage: 1 DOSAGE FORM, QD, (1 TABLET DAILY)
     Route: 065
     Dates: start: 2006, end: 2018

REACTIONS (2)
  - Pancreatic carcinoma stage IV [Fatal]
  - Hepatic cancer stage IV [Unknown]

NARRATIVE: CASE EVENT DATE: 20190226
